FAERS Safety Report 20738288 (Version 1)
Quarter: 2022Q2

REPORT INFORMATION
  Report Type: Spontaneous
  Country: US (occurrence: US)
  Receive Date: 20220422
  Receipt Date: 20220422
  Transmission Date: 20220720
  Serious: Yes (Death, Other)
  Sender: FDA-Public Use
  Company Number: US-BRISTOL-MYERS SQUIBB COMPANY-2022-021413

PATIENT
  Age: 66 Year
  Sex: Female

DRUGS (15)
  1. ELIQUIS [Suspect]
     Active Substance: APIXABAN
     Indication: Product used for unknown indication
     Dosage: DOSE : 5 MG;     FREQ : BID
     Route: 048
  2. VITAMIN C [Concomitant]
     Active Substance: ASCORBIC ACID
  3. LISINOPRIL [Concomitant]
     Active Substance: LISINOPRIL
  4. AJMALINE [Concomitant]
     Active Substance: AJMALINE
  5. GABAPENTIN [Concomitant]
     Active Substance: GABAPENTIN
  6. LASIX [Concomitant]
     Active Substance: FUROSEMIDE
  7. METOPROLOL [Concomitant]
     Active Substance: METOPROLOL
  8. OMEPRAZOLE [Concomitant]
     Active Substance: OMEPRAZOLE
  9. Oxycodone/Tylenol [Concomitant]
  10. TYLENOL [Concomitant]
     Active Substance: ACETAMINOPHEN
  11. PRAVASTATIN [Concomitant]
     Active Substance: PRAVASTATIN
  12. VITAMIN D3 [Concomitant]
     Active Substance: CHOLECALCIFEROL
  13. FISH OIL [Concomitant]
     Active Substance: FISH OIL
  14. MAGNESIUM [Concomitant]
     Active Substance: MAGNESIUM
  15. POTASSIUM [Concomitant]
     Active Substance: POTASSIUM

REACTIONS (1)
  - Death [Fatal]

NARRATIVE: CASE EVENT DATE: 20220201
